FAERS Safety Report 4353175-7 (Version None)
Quarter: 2004Q2

REPORT INFORMATION
  Report Type: 
  Country: None (occurrence: None)
  Receive Date: 20040504
  Receipt Date: 20040504
  Transmission Date: 20050107
  Serious: Yes (Hospitalization)
  Sender: FDA-Public Use
  Company Number: None

PATIENT
  Age: 66 Year
  Sex: Male
  Weight: 108.2 kg

DRUGS (5)
  1. METHOTREXATE [Suspect]
     Indication: CENTRAL NERVOUS SYSTEM LYMPHOMA
     Dosage: 7350 IV
     Route: 042
     Dates: start: 20040315
  2. METHOTREXATE [Suspect]
     Indication: CENTRAL NERVOUS SYSTEM LYMPHOMA
     Dosage: 7350 IV
     Route: 042
     Dates: start: 20040329
  3. METHOTREXATE [Suspect]
     Indication: CENTRAL NERVOUS SYSTEM LYMPHOMA
     Dosage: 7350 IV
     Route: 042
     Dates: start: 20040412
  4. TEMOZOLOMIDE [Suspect]
     Indication: CENTRAL NERVOUS SYSTEM LYMPHOMA
     Dosage: 200 MG PO
     Route: 048
     Dates: start: 20040405
  5. RITUXAN [Suspect]
     Indication: CENTRAL NERVOUS SYSTEM LYMPHOMA
     Dosage: 787 MG IV
     Route: 042
     Dates: start: 20040312

REACTIONS (2)
  - CONDITION AGGRAVATED [None]
  - DEEP VEIN THROMBOSIS [None]
